FAERS Safety Report 17541548 (Version 5)
Quarter: 2020Q4

REPORT INFORMATION
  Report Type: Spontaneous
  Country: US (occurrence: US)
  Receive Date: 20200313
  Receipt Date: 20201029
  Transmission Date: 20210113
  Serious: Yes (Other)
  Sender: FDA-Public Use
  Company Number: US-BAYER-2020-042302

PATIENT
  Age: 50 Year
  Sex: Male

DRUGS (4)
  1. KOGENATE FS [Suspect]
     Active Substance: ANTIHEMOPHILIC FACTOR, HUMAN RECOMBINANT
     Dosage: 3000 U TO TREAT ELBOW BRUISE
     Route: 042
  2. KOGENATE FS [Suspect]
     Active Substance: ANTIHEMOPHILIC FACTOR, HUMAN RECOMBINANT
     Dosage: UNK (1 DOSE TO PREVENT BLEEDING)
     Route: 042
     Dates: start: 201911, end: 201911
  3. KOGENATE FS [Suspect]
     Active Substance: ANTIHEMOPHILIC FACTOR, HUMAN RECOMBINANT
     Dosage: 3000 U, UNK
     Route: 042
  4. KOGENATE FS [Suspect]
     Active Substance: ANTIHEMOPHILIC FACTOR, HUMAN RECOMBINANT
     Dosage: UNK (1 DOSE TO TREAT A KNEE BLEEDING)
     Route: 042
     Dates: start: 20200227, end: 20200227

REACTIONS (5)
  - Road traffic accident [None]
  - Haemarthrosis [Recovered/Resolved]
  - Contusion [None]
  - Impaired healing [None]
  - Artificial crown procedure [Recovered/Resolved]

NARRATIVE: CASE EVENT DATE: 201911
